FAERS Safety Report 9105351 (Version 1)
Quarter: 2013Q1

REPORT INFORMATION
  Report Type: Spontaneous
  Country: US (occurrence: US)
  Receive Date: 20130220
  Receipt Date: 20130220
  Transmission Date: 20140127
  Serious: Yes (Death)
  Sender: FDA-Public Use
  Company Number: US-INCYTE CORPORATION-2012IN000980

PATIENT
  Sex: Male

DRUGS (11)
  1. JAKAFI [Suspect]
     Indication: MYELOFIBROSIS
     Dosage: 10 MG, BID
     Route: 048
     Dates: start: 201201
  2. JAKAFI [Suspect]
     Dosage: 10 MG, QD
     Route: 048
  3. JAKAFI [Suspect]
     Dosage: 5 MG, BID
     Route: 048
  4. LASIX [Concomitant]
     Dosage: 10 MG, QD
     Route: 048
     Dates: start: 201201
  5. PREDNISONE [Concomitant]
  6. FOLIC ACID [Concomitant]
  7. OMEPRAZOLE [Concomitant]
  8. POTASSIUM CHLORIDE [Concomitant]
  9. VITAMIN B12 [Concomitant]
  10. THALOMID [Concomitant]
  11. ARANESP [Concomitant]

REACTIONS (3)
  - Death [Fatal]
  - Blood urine present [Unknown]
  - Anaemia [Unknown]
